FAERS Safety Report 5348171-7 (Version None)
Quarter: 2007Q2

REPORT INFORMATION
  Report Type: 
  Country: None (occurrence: None)
  Receive Date: 20070606
  Receipt Date: 20070525
  Transmission Date: 20071010
  Serious: Yes (Death, Other)
  Sender: FDA-Public Use
  Company Number: HQWYE548104APR07

PATIENT
  Sex: Male
  Weight: 54 kg

DRUGS (6)
  1. MYLOTARG [Suspect]
     Indication: ACUTE MYELOID LEUKAEMIA RECURRENT
     Route: 041
     Dates: start: 20070319, end: 20070319
  2. GASTER [Concomitant]
     Indication: PROPHYLAXIS
     Route: 048
     Dates: start: 20070319, end: 20070327
  3. DIFLUCAN [Concomitant]
     Indication: PROPHYLAXIS
     Route: 048
     Dates: start: 20070319, end: 20070327
  4. LEVOFLOXACIN [Concomitant]
     Indication: PROPHYLAXIS
     Route: 048
     Dates: start: 20070319, end: 20070327
  5. LASIX [Concomitant]
     Indication: PROPHYLAXIS
     Route: 042
     Dates: start: 20070320, end: 20070322
  6. SELBEX [Concomitant]
     Indication: PROPHYLAXIS
     Route: 048
     Dates: start: 20070319, end: 20070327

REACTIONS (2)
  - PNEUMONIA [None]
  - VENOOCCLUSIVE LIVER DISEASE [None]
